FAERS Safety Report 11099667 (Version 1)
Quarter: 2015Q2

REPORT INFORMATION
  Report Type: Spontaneous
  Country: US (occurrence: None)
  Receive Date: 20150507
  Receipt Date: 20150507
  Transmission Date: 20150821
  Serious: Yes (Hospitalization)
  Sender: FDA-Public Use
  Company Number: None

PATIENT
  Age: 48 Year
  Sex: Male
  Weight: 76 kg

DRUGS (1)
  1. CISPLATIN. [Suspect]
     Active Substance: CISPLATIN
     Dates: end: 20140324

REACTIONS (7)
  - Hypoxia [None]
  - Mental status changes [None]
  - Respiratory failure [None]
  - Streptococcus test positive [None]
  - Staphylococcus test positive [None]
  - Hypercapnia [None]
  - Pneumonia aspiration [None]

NARRATIVE: CASE EVENT DATE: 20140407
